FAERS Safety Report 12207238 (Version 1)
Quarter: 2016Q1

REPORT INFORMATION
  Report Type: Spontaneous
  Country: CN (occurrence: CN)
  Receive Date: 20160324
  Receipt Date: 20160324
  Transmission Date: 20160526
  Serious: Yes (Other)
  Sender: FDA-Public Use
  Company Number: PHHY2016CN036119

PATIENT

DRUGS (3)
  1. GLIVEC [Suspect]
     Active Substance: IMATINIB MESYLATE
     Indication: PRODUCT USED FOR UNKNOWN INDICATION
     Dosage: 4 DF, QD
     Route: 048
  2. GLIVEC [Suspect]
     Active Substance: IMATINIB MESYLATE
     Dosage: 4 DF, QD
     Route: 048
  3. GLIVEC [Suspect]
     Active Substance: IMATINIB MESYLATE
     Dosage: 3 DF, QD
     Route: 048

REACTIONS (8)
  - Anti-thyroid antibody positive [Unknown]
  - Thyroid hormones decreased [Unknown]
  - Electrocardiogram QT prolonged [Unknown]
  - Cytogenetic abnormality [Unknown]
  - Splenomegaly [Unknown]
  - Rash [Unknown]
  - White blood cell count increased [Unknown]
  - Oedema [Unknown]
